FAERS Safety Report 5216907-1 (Version None)
Quarter: 2007Q1

REPORT INFORMATION
  Report Type: 
  Country: None (occurrence: None)
  Receive Date: 20070124
  Receipt Date: 20070116
  Transmission Date: 20070707
  Serious: Yes (Other)
  Sender: FDA-Public Use
  Company Number: US-JNJFOC-20070103055

PATIENT
  Sex: Male
  Weight: 71.67 kg

DRUGS (12)
  1. REMICADE [Suspect]
     Indication: COLITIS ULCERATIVE
     Route: 042
  2. COLAZAL [Concomitant]
     Dosage: DOSE IS ^3 ^ THREE TIMES DAILY
  3. PLAVIX [Concomitant]
  4. DAVFOL [Concomitant]
  5. SYNTHROID [Concomitant]
  6. ZOLOFT [Concomitant]
  7. TESTOSTERONE [Concomitant]
  8. CEMPLAR [Concomitant]
  9. EPOGEN [Concomitant]
  10. ALBUTEROL [Concomitant]
  11. LORTAB [Concomitant]
  12. PHOSLO [Concomitant]
     Dosage: DOSE IS 4 CAPSULES WITH MEALS AND 2 CAPSULES WITH SNACKS
     Route: 048

REACTIONS (3)
  - CONVULSION [None]
  - HEADACHE [None]
  - NUCLEAR MAGNETIC RESONANCE IMAGING BRAIN ABNORMAL [None]
